APPROVED DRUG PRODUCT: PATADAY ONCE DAILY RELIEF
Active Ingredient: OLOPATADINE HYDROCHLORIDE
Strength: EQ 0.7% BASE
Dosage Form/Route: SOLUTION/DROPS;OPHTHALMIC
Application: N206276 | Product #001
Applicant: ALCON LABORATORIES INC
Approved: Jan 30, 2015 | RLD: Yes | RS: Yes | Type: OTC

PATENTS:
Patent 8791154 | Expires: May 19, 2032
Patent 9533053 | Expires: May 19, 2032